FAERS Safety Report 8192386-X (Version None)
Quarter: 2012Q1

REPORT INFORMATION
  Report Type: 
  Country: None (occurrence: None)
  Receive Date: 20120308
  Receipt Date: 20120228
  Transmission Date: 20120608
  Serious: Yes (Hospitalization)
  Sender: FDA-Public Use
  Company Number: US-BIOGENIDEC-2011BI042058

PATIENT
  Age: 61 Year
  Sex: Female

DRUGS (1)
  1. TYSABRI [Suspect]
     Indication: MULTIPLE SCLEROSIS
     Route: 042
     Dates: start: 20100315

REACTIONS (5)
  - OPPORTUNISTIC INFECTION [None]
  - URINARY TRACT INFECTION [None]
  - BLOOD POTASSIUM DECREASED [None]
  - SEPSIS [None]
  - NASOPHARYNGITIS [None]
